FAERS Safety Report 9171646 (Version 1)
Quarter: 2013Q1

REPORT INFORMATION
  Report Type: Report from Study
  Country: CA (occurrence: CA)
  Receive Date: 20130319
  Receipt Date: 20130319
  Transmission Date: 20140127
  Serious: Yes (Other)
  Sender: FDA-Public Use
  Company Number: CA-PFIZER INC-2013060097

PATIENT
  Age: 61 Year
  Sex: Female

DRUGS (18)
  1. LIPITOR [Suspect]
     Dosage: UNK
     Dates: end: 20130130
  2. CELEBREX [Concomitant]
     Dosage: 200 MG, 1X/DAY
     Route: 048
     Dates: start: 200910, end: 20120313
  3. METFORMIN [Concomitant]
     Dosage: 500 MG, 2X/DAY
     Route: 048
     Dates: start: 201112, end: 20120312
  4. METFORMIN [Concomitant]
     Dosage: 500 MG, 2X/DAY
     Route: 048
     Dates: start: 20120315, end: 20120509
  5. METFORMIN [Concomitant]
     Dosage: 500 MG, 3X/DAY
     Route: 048
     Dates: start: 20120510, end: 20120710
  6. METFORMIN [Concomitant]
     Dosage: 850 MG, 2X/DAY
     Route: 048
     Dates: start: 20120711
  7. ELAVIL [Concomitant]
     Dosage: 50 MG, 1X/DAY
     Route: 048
     Dates: start: 200507, end: 20121215
  8. LORAZEPAM [Concomitant]
     Dosage: 0.5 MG, 1X/DAY
     Route: 048
     Dates: start: 20120315, end: 20130227
  9. TYLENOL ARTHRITIS [Concomitant]
     Dosage: 650 MG, 2X/DAY
     Route: 048
     Dates: start: 20120314
  10. PARIET [Concomitant]
     Dosage: 20 MG, 1X/DAY
     Route: 048
     Dates: start: 200905, end: 20120716
  11. ATARAX [Concomitant]
     Dosage: 10 MG, AS NEEDED
     Route: 048
     Dates: start: 20120718, end: 20130227
  12. BENADRYL [Concomitant]
     Dosage: 25 MG, AS NEEDED
     Route: 048
     Dates: start: 20120718, end: 20120723
  13. REACTINE [Concomitant]
     Dosage: 10 MG, AS NEEDED
     Route: 048
  14. DEXILANT [Concomitant]
     Dosage: 60 MG, 1X/DAY
     Route: 048
     Dates: start: 20121019, end: 20130108
  15. DEXILANT [Concomitant]
     Dosage: 30 MG, 1X/DAY
     Dates: start: 20130207, end: 20130218
  16. METHYLSULFONYLMETHANE [Concomitant]
     Dosage: 2000 MG, 1X/DAY
     Dates: start: 20130228
  17. MELATONIN [Concomitant]
     Dosage: 3 MG, 1X/DAY
     Dates: start: 20130227
  18. GLUTATHIONE [Concomitant]
     Dosage: 3 DF, 1X/DAY
     Dates: start: 20130228

REACTIONS (2)
  - Hepatitis [Recovered/Resolved]
  - Abdominal pain upper [Not Recovered/Not Resolved]
